FAERS Safety Report 10020129 (Version 1)
Quarter: 2014Q1

REPORT INFORMATION
  Report Type: Spontaneous
  Country: US (occurrence: US)
  Receive Date: 20140319
  Receipt Date: 20140319
  Transmission Date: 20141002
  Serious: Yes (Hospitalization)
  Sender: FDA-Public Use
  Company Number: US-AMGEN-USASP2014018299

PATIENT
  Age: 72 Year
  Sex: Male
  Weight: 64.4 kg

DRUGS (1)
  1. PROCRIT [Suspect]
     Indication: PRODUCT USED FOR UNKNOWN INDICATION
     Dosage: UNK
     Route: 065
     Dates: start: 2011

REACTIONS (6)
  - Cardiac failure congestive [Unknown]
  - Transient ischaemic attack [Unknown]
  - Poor peripheral circulation [Unknown]
  - Gangrene [Recovered/Resolved]
  - Unevaluable event [Unknown]
  - Renal disorder [Not Recovered/Not Resolved]
